FAERS Safety Report 10364639 (Version 1)
Quarter: 2014Q1

REPORT INFORMATION
  Report Type: Spontaneous
  Country: US (occurrence: None)
  Receive Date: 20140306
  Receipt Date: 20140306
  Transmission Date: 20141002
  Serious: Yes (Hospitalization, Other)
  Sender: FDA-Public Use
  Company Number: 163-21880-13106206

PATIENT
  Age: 98 Year
  Sex: Female

DRUGS (1)
  1. REVLIMID (LENALIDOMIDE)(5 MILLIGRAM, CAPSULES) [Suspect]
     Indication: PLASMA CELL MYELOMA
     Dosage: 21 IN 28 D
     Route: 048
     Dates: start: 201309

REACTIONS (4)
  - Fall [None]
  - Incontinence [None]
  - Somnolence [None]
  - Vomiting [None]
